FAERS Safety Report 7915483-X (Version None)
Quarter: 2011Q4

REPORT INFORMATION
  Report Type: 
  Country: None (occurrence: None)
  Receive Date: 20111115
  Receipt Date: 20111026
  Transmission Date: 20120403
  Serious: Yes (Other)
  Sender: FDA-Public Use
  Company Number: US-BAXTER-2011BH034970

PATIENT

DRUGS (3)
  1. CYCLOPHOSPHAMIDE [Suspect]
     Indication: FOETAL EXPOSURE TIMING UNSPECIFIED
     Route: 064
  2. DOXORUBICIN HCL [Suspect]
     Indication: FOETAL EXPOSURE TIMING UNSPECIFIED
     Route: 064
  3. FLUOROURACIL [Suspect]
     Indication: FOETAL EXPOSURE TIMING UNSPECIFIED
     Route: 064

REACTIONS (2)
  - FOETAL EXPOSURE DURING PREGNANCY [None]
  - ALOPECIA [None]
